FAERS Safety Report 9343085 (Version 2)
Quarter: 2013Q2

REPORT INFORMATION
  Report Type: Spontaneous
  Country: PK (occurrence: PK)
  Receive Date: 20130611
  Receipt Date: 20130614
  Transmission Date: 20140414
  Serious: Yes (Death, Other)
  Sender: FDA-Public Use
  Company Number: PHHY2013PK058640

PATIENT
  Age: 26 Year
  Sex: Male

DRUGS (1)
  1. VALPROIC ACID [Suspect]
     Indication: EPILEPSY

REACTIONS (6)
  - Toxic epidermal necrolysis [Fatal]
  - Skin exfoliation [Fatal]
  - Oral mucosal eruption [Fatal]
  - Nikolsky^s sign [Fatal]
  - Pneumonia [Not Recovered/Not Resolved]
  - Multi-organ failure [Not Recovered/Not Resolved]
